FAERS Safety Report 4290360-7 (Version None)
Quarter: 2004Q1

REPORT INFORMATION
  Report Type: 
  Country: None (occurrence: None)
  Receive Date: 20040206
  Receipt Date: 20040206
  Transmission Date: 20041129
  Serious: Yes (Other)
  Sender: FDA-Public Use
  Company Number: None

PATIENT
  Age: 21 Year
  Sex: Female
  Weight: 79.3795 kg

DRUGS (3)
  1. COUMADIN [Suspect]
     Indication: PULMONARY EMBOLISM
     Dosage: 15 MG, 12 MG ALTERN MG ORAL
     Route: 048
  2. LOVENOX [Suspect]
     Indication: PREGNANCY
     Dosage: 80 MG 2 TIMES IV
     Route: 042
  3. LOVENOX [Suspect]
     Indication: PULMONARY EMBOLISM
     Dosage: 80 MG 2 TIMES IV
     Route: 042

REACTIONS (2)
  - FOETAL HEART RATE ABNORMAL [None]
  - MATERNAL DRUGS AFFECTING FOETUS [None]
